FAERS Safety Report 13760216 (Version 5)
Quarter: 2017Q3

REPORT INFORMATION
  Report Type: Report from Study
  Country: US (occurrence: US)
  Receive Date: 20170717
  Receipt Date: 20170925
  Transmission Date: 20171127
  Serious: Yes (Other)
  Sender: FDA-Public Use
  Company Number: US-JNJFOC-20160722513

PATIENT
  Age: 62 Year
  Sex: Male

DRUGS (12)
  1. MOBIC [Concomitant]
     Active Substance: MELOXICAM
  2. IMBRUVICA [Suspect]
     Active Substance: IBRUTINIB
     Indication: CHRONIC LYMPHOCYTIC LEUKAEMIA
     Route: 048
     Dates: start: 20160719
  3. CELEBREX [Concomitant]
     Active Substance: CELECOXIB
  4. IMBRUVICA [Suspect]
     Active Substance: IBRUTINIB
     Indication: LYMPHOCYTIC LEUKAEMIA
     Route: 048
     Dates: start: 20170118
  5. IMBRUVICA [Suspect]
     Active Substance: IBRUTINIB
     Indication: CHRONIC LYMPHOCYTIC LEUKAEMIA
     Route: 048
     Dates: start: 20170118
  6. ZOCOR [Concomitant]
     Active Substance: SIMVASTATIN
  7. IMBRUVICA [Suspect]
     Active Substance: IBRUTINIB
     Indication: LYMPHOCYTIC LEUKAEMIA
     Route: 048
     Dates: start: 20160719
  8. IMBRUVICA [Suspect]
     Active Substance: IBRUTINIB
     Indication: LYMPHOCYTIC LEUKAEMIA
     Route: 048
     Dates: start: 20170119
  9. VIAGRA [Concomitant]
     Active Substance: SILDENAFIL CITRATE
  10. DIOVAN [Concomitant]
     Active Substance: VALSARTAN
  11. ATORVASTATIN [Concomitant]
     Active Substance: ATORVASTATIN
  12. IMBRUVICA [Suspect]
     Active Substance: IBRUTINIB
     Indication: CHRONIC LYMPHOCYTIC LEUKAEMIA
     Route: 048
     Dates: start: 20170119

REACTIONS (3)
  - Uveitis [Unknown]
  - Adverse event [Not Recovered/Not Resolved]
  - White blood cell count increased [Recovered/Resolved]

NARRATIVE: CASE EVENT DATE: 201607
